FAERS Safety Report 5931742-4 (Version None)
Quarter: 2008Q4

REPORT INFORMATION
  Report Type: 
  Country: None (occurrence: None)
  Receive Date: 20081027
  Receipt Date: 20081014
  Transmission Date: 20090506
  Serious: Yes (Hospitalization)
  Sender: FDA-Public Use
  Company Number: US-ABBOTT-08P-163-0481650-00

PATIENT
  Sex: Male
  Weight: 90.8 kg

DRUGS (10)
  1. HUMIRA [Suspect]
     Indication: RHEUMATOID ARTHRITIS
     Route: 058
     Dates: start: 20050101, end: 20070101
  2. HUMIRA [Suspect]
     Route: 058
     Dates: start: 20070101
  3. METHOTREXATE [Concomitant]
     Indication: ARTHRITIS
     Dosage: FOUR PILLS X TWO DAYS
     Route: 048
     Dates: start: 20060601, end: 20071201
  4. PREDNISONE TAB [Concomitant]
     Indication: ARTHRITIS
     Route: 048
     Dates: start: 20020101
  5. TRAMADOL HCL [Concomitant]
     Indication: PAIN
     Dosage: FIVE PILLS DAILY
     Route: 048
     Dates: start: 20020101
  6. LORTAB [Concomitant]
     Indication: PAIN
     Dosage: 7.5/500 MG- AT HS PRN
     Route: 048
     Dates: start: 20080201
  7. NICOTINIC ACID [Concomitant]
     Indication: BLOOD CHOLESTEROL
     Route: 048
     Dates: start: 20080801
  8. POTASSIUM CHLORIDE [Concomitant]
     Indication: ARTHRITIS
     Route: 048
     Dates: start: 20000101
  9. FOLIC ACID [Concomitant]
     Indication: DRUG USE FOR UNKNOWN INDICATION
     Route: 048
     Dates: start: 20000101
  10. ERGOCALCIFEROL [Concomitant]
     Indication: DRUG USE FOR UNKNOWN INDICATION
     Route: 048
     Dates: start: 20000101

REACTIONS (2)
  - CHOLELITHIASIS [None]
  - PANCREATITIS [None]
